FAERS Safety Report 9691990 (Version 2)
Quarter: 2014Q2

REPORT INFORMATION
  Report Type: Report from Study
  Country: US (occurrence: US)
  Receive Date: 20131118
  Receipt Date: 20140501
  Transmission Date: 20141212
  Serious: Yes (Life-Threatening, Hospitalization)
  Sender: FDA-Public Use
  Company Number: US-BIOGENIDEC-2013BI108113

PATIENT
  Age: 24 Year
  Sex: Female
  Weight: 72 kg

DRUGS (8)
  1. TYSABRI [Suspect]
     Indication: MULTIPLE SCLEROSIS
     Route: 042
     Dates: start: 20081105
  2. ABILIFY [Concomitant]
     Indication: DEPRESSION
     Route: 048
     Dates: start: 20130919
  3. ADDERALL XR [Concomitant]
     Indication: FATIGUE
     Route: 048
     Dates: start: 20130918
  4. BACLOFEN [Concomitant]
     Indication: MUSCLE SPASTICITY
     Route: 048
     Dates: start: 20130820
  5. VITAMIN D3 [Concomitant]
     Indication: SUPPLEMENTATION THERAPY
     Route: 048
     Dates: start: 20121213
  6. EFFEXOR XR [Concomitant]
     Indication: DEPRESSION
     Route: 048
     Dates: start: 20120724
  7. AMYTRIPTYLINE [Concomitant]
     Indication: RESTLESS LEGS SYNDROME
     Route: 048
     Dates: start: 20120607
  8. MIRENA [Concomitant]
     Indication: CONTRACEPTION
     Route: 015
     Dates: start: 20110503

REACTIONS (1)
  - Overdose [Recovered/Resolved]
